FAERS Safety Report 21341705 (Version 1)
Quarter: 2022Q3

REPORT INFORMATION
  Report Type: Spontaneous
  Country: US (occurrence: None)
  Receive Date: 20220915
  Receipt Date: 20220915
  Transmission Date: 20221027
  Serious: Yes (Other)
  Sender: FDA-Public Use
  Company Number: None

PATIENT
  Age: 59 Year
  Sex: Female
  Weight: 52.4 kg

DRUGS (12)
  1. BEBTELOVIMAB [Suspect]
     Active Substance: BEBTELOVIMAB
     Indication: COVID-19
     Dosage: FREQUENCY : ONCE;?
     Route: 042
     Dates: start: 20220913
  2. CHLORHEXIDINE [Concomitant]
  3. COLLAGENASE OINTMENT [Concomitant]
     Active Substance: COLLAGENASE CLOSTRIDIUM HISTOLYTICUM
  4. FERROUS SULFATE [Concomitant]
     Active Substance: FERROUS SULFATE
  5. FOLIC ACID [Concomitant]
     Active Substance: FOLIC ACID
  6. NYSTATIN POWDER [Concomitant]
  7. SILVER SULFADIAZINE [Concomitant]
     Active Substance: SILVER SULFADIAZINE
  8. THIAMINE [Concomitant]
     Active Substance: THIAMINE
  9. ACETAMINOPHEN [Concomitant]
     Active Substance: ACETAMINOPHEN
  10. HYDROMORPHONE INJECTABLE [Concomitant]
  11. BUDESONIDE/FORMOTEROL INHALER [Concomitant]
  12. TIOTROPIUM [Concomitant]
     Active Substance: TIOTROPIUM

REACTIONS (2)
  - Rash [None]
  - Pyrexia [None]

NARRATIVE: CASE EVENT DATE: 20220914
